FAERS Safety Report 19039331 (Version 1)
Quarter: 2021Q1

REPORT INFORMATION
  Report Type: Spontaneous
  Country: EC (occurrence: EC)
  Receive Date: 20210322
  Receipt Date: 20210322
  Transmission Date: 20210420
  Serious: Yes (Other)
  Sender: FDA-Public Use
  Company Number: EC-LUPIN PHARMACEUTICALS INC.-2021-03396

PATIENT
  Age: 60 Year
  Sex: Female

DRUGS (10)
  1. ACETYLCYSTEINE. [Concomitant]
     Active Substance: ACETYLCYSTEINE
     Indication: EVIDENCE BASED TREATMENT
     Dosage: UNK
     Route: 065
  2. ENOXAPARIN [Concomitant]
     Active Substance: ENOXAPARIN
     Indication: PRODUCT USED FOR UNKNOWN INDICATION
     Dosage: 40 MILLIGRAM, SINGLE
     Route: 058
  3. NORMAL SALINE [Concomitant]
     Active Substance: SODIUM CHLORIDE
     Indication: EVIDENCE BASED TREATMENT
     Dosage: UNK, NEBULISATION DURING EMPIRIC TREATMENT
     Route: 065
  4. PREDNISONE. [Suspect]
     Active Substance: PREDNISONE
     Indication: COVID-19
     Dosage: 40 MILLIGRAM, QD
     Route: 048
  5. NORMAL SALINE [Concomitant]
     Active Substance: SODIUM CHLORIDE
     Indication: FLUID REPLACEMENT
  6. NITAZOXANIDE [Suspect]
     Active Substance: NITAZOXANIDE
     Indication: COVID-19
     Dosage: 500 MILLIGRAM, TID
     Route: 065
  7. METHYLPREDNISOLONE. [Suspect]
     Active Substance: METHYLPREDNISOLONE
     Indication: COVID-19
     Dosage: 250 MILLIGRAM, QD
     Route: 042
  8. COLCHICINE. [Suspect]
     Active Substance: COLCHICINE
     Indication: COVID-19
     Dosage: 2 MILLIGRAM, LOADING DOSE; ADDED ON DAY 3 OF TREATMENT
     Route: 065
  9. COLCHICINE. [Suspect]
     Active Substance: COLCHICINE
     Dosage: 0.5 MILLIGRAM, ADMINISTERED UP TO THE END OF TREATMENT
     Route: 065
  10. AMBROXOL HYDROCHLORIDE [Concomitant]
     Active Substance: AMBROXOL HYDROCHLORIDE
     Indication: EVIDENCE BASED TREATMENT
     Dosage: UNK
     Route: 065

REACTIONS (1)
  - Off label use [Unknown]
